FAERS Safety Report 8104666-4 (Version None)
Quarter: 2012Q1

REPORT INFORMATION
  Report Type: 
  Country: None (occurrence: None)
  Receive Date: 20120201
  Receipt Date: 20120118
  Transmission Date: 20120608
  Serious: Yes (Other)
  Sender: FDA-Public Use
  Company Number: CA-JNJFOC-20120113392

PATIENT
  Sex: Male
  Weight: 92 kg

DRUGS (3)
  1. REMICADE [Suspect]
     Indication: ANKYLOSING SPONDYLITIS
     Route: 042
     Dates: start: 20050101
  2. REMICADE [Suspect]
     Indication: CROHN'S DISEASE
     Route: 042
     Dates: start: 20050101
  3. METHOTREXATE [Concomitant]

REACTIONS (7)
  - ASTHENIA [None]
  - PARAESTHESIA [None]
  - POOR QUALITY SLEEP [None]
  - MUSCULOSKELETAL STIFFNESS [None]
  - PAIN [None]
  - SKIN DISCOLOURATION [None]
  - DECREASED APPETITE [None]
